FAERS Safety Report 21685451 (Version 1)
Quarter: 2022Q4

REPORT INFORMATION
  Report Type: Spontaneous
  Country: US (occurrence: US)
  Receive Date: 20221206
  Receipt Date: 20221206
  Transmission Date: 20230112
  Serious: No
  Sender: FDA-Public Use
  Company Number: US-MTPC-MTDA2022-0032206

PATIENT
  Age: 60 Year
  Sex: Male

DRUGS (1)
  1. RADICAVA [Suspect]
     Active Substance: EDARAVONE
     Indication: Amyotrophic lateral sclerosis
     Dosage: UNK
     Route: 042
     Dates: start: 202112

REACTIONS (3)
  - Device dislocation [Unknown]
  - Haemorrhage [Unknown]
  - Device leakage [Unknown]
